FAERS Safety Report 8816990 (Version 1)
Quarter: 2012Q4

REPORT INFORMATION
  Report Type: Spontaneous
  Country: US (occurrence: None)
  Receive Date: 20121003
  Receipt Date: 20121003
  Transmission Date: 20130627
  Serious: No
  Sender: FDA-Public Use
  Company Number: None

PATIENT
  Sex: Female

DRUGS (1)
  1. AMPYRA [Suspect]
     Indication: GENERAL SYMPTOM
     Dosage: 1 TABLET BY MOUTH TWICE A DAY
     Route: 048

REACTIONS (1)
  - Facial pain [None]
